FAERS Safety Report 8121163-0 (Version None)
Quarter: 2012Q1

REPORT INFORMATION
  Report Type: 
  Country: None (occurrence: None)
  Receive Date: 20120208
  Receipt Date: 20120201
  Transmission Date: 20120608
  Serious: Yes (Hospitalization, Other)
  Sender: FDA-Public Use
  Company Number: JP-BAYER-2011-120319

PATIENT
  Age: 39 Year
  Sex: Female
  Weight: 62 kg

DRUGS (12)
  1. CLINDAMYCIN [Suspect]
     Indication: PELVIC ABSCESS
     Dosage: DAILY DOSE 2.4 G
     Route: 065
     Dates: start: 20110412, end: 20110426
  2. VANCOMYCIN [Concomitant]
     Indication: OVARIAN ABSCESS
     Dosage: UNK
     Route: 065
  3. CIPROFLOXACIN [Suspect]
     Indication: OVARIAN ABSCESS
     Dosage: DAILY DOSE 600 MG
     Route: 041
     Dates: start: 20110412, end: 20110425
  4. PREDNISOLONE [Suspect]
     Indication: MIXED CONNECTIVE TISSUE DISEASE
     Dosage: DAILY DOSE 5 MG
     Route: 048
  5. AMPICILLIN AND SULBACTAM [Concomitant]
     Indication: OVARIAN ABSCESS
     Dosage: UNK
     Route: 042
  6. EC [Concomitant]
     Indication: OVARIAN ABSCESS
     Dosage: UNK
     Route: 065
  7. LINEZOLID [Concomitant]
     Indication: OVARIAN ABSCESS
     Dosage: UNK
     Route: 065
  8. ERYTHROCIN LACTOBIONATE [Concomitant]
     Indication: OVARIAN ABSCESS
  9. ZOSYN [Concomitant]
     Indication: PELVIC ABSCESS
     Dosage: 9 G, ONCE
     Route: 042
     Dates: start: 20110412, end: 20110412
  10. CIPROFLOXACIN [Suspect]
     Indication: PELVIC ABSCESS
     Dosage: UNK
     Dates: start: 20110603, end: 20110609
  11. CLINDAMYCIN [Suspect]
     Dosage: UNK
     Dates: start: 20110603, end: 20110609
  12. MEROPENEM [Concomitant]
     Indication: OVARIAN ABSCESS
     Dosage: UNK
     Route: 042

REACTIONS (3)
  - SHOCK [None]
  - RECTAL PERFORATION [None]
  - INFECTIOUS PERITONITIS [None]
